FAERS Safety Report 13977614 (Version 3)
Quarter: 2017Q3

REPORT INFORMATION
  Report Type: Spontaneous
  Country: PL (occurrence: PL)
  Receive Date: 20170914
  Receipt Date: 20170928
  Transmission Date: 20171128
  Serious: Yes (Hospitalization, Disabling, Other)
  Sender: FDA-Public Use
  Company Number: PL-GILEAD-2017-0292543

PATIENT
  Age: 24 Year
  Sex: Male
  Weight: 40 kg

DRUGS (12)
  1. TRUVADA [Suspect]
     Active Substance: EMTRICITABINE\TENOFOVIR DISOPROXIL FUMARATE
     Indication: HIV TEST POSITIVE
     Dosage: UNK
     Route: 065
     Dates: start: 20140708
  2. GANCICLOVIR. [Concomitant]
     Active Substance: GANCICLOVIR
     Dosage: 200 MG, QD
     Route: 042
     Dates: start: 20140711
  3. CLARITHROMYCIN. [Concomitant]
     Active Substance: CLARITHROMYCIN
     Dosage: UNK, BID
     Route: 048
     Dates: start: 20140707, end: 20140728
  4. FLUCONAZOLE. [Concomitant]
     Active Substance: FLUCONAZOLE
     Dosage: 100 MG, QD
  5. XIFAXAN [Concomitant]
     Active Substance: RIFAXIMIN
     Dosage: 200 MG, TID
  6. HYDROCORTISONE. [Concomitant]
     Active Substance: HYDROCORTISONE
  7. MERONEM [Concomitant]
     Active Substance: MEROPENEM
     Indication: PYREXIA
     Dosage: UNK
     Dates: start: 20140713
  8. VIRAMUNE [Suspect]
     Active Substance: NEVIRAPINE
     Indication: HIV TEST POSITIVE
     Dosage: UNK
     Route: 065
     Dates: start: 20140708
  9. SALOFALK                           /00000301/ [Concomitant]
     Active Substance: MESALAMINE
  10. AZITHROMYCIN ANHYDROUS. [Concomitant]
     Active Substance: AZITHROMYCIN ANHYDROUS
     Dosage: 1250 MG, Q1WK
     Dates: start: 20140729
  11. GANCICLOVIR. [Concomitant]
     Active Substance: GANCICLOVIR
     Indication: CYTOMEGALOVIRUS INFECTION
     Dosage: UNK
     Dates: start: 201406
  12. VANCOMYCIN [Concomitant]
     Active Substance: VANCOMYCIN
     Dosage: 1.0, TID
     Route: 042

REACTIONS (5)
  - Syphilis [Unknown]
  - Immune reconstitution inflammatory syndrome [Unknown]
  - Central nervous system lesion [Unknown]
  - Intervertebral disc protrusion [Unknown]
  - Generalised anxiety disorder [Unknown]

NARRATIVE: CASE EVENT DATE: 20140707
